FAERS Safety Report 8365026-4 (Version None)
Quarter: 2012Q2

REPORT INFORMATION
  Report Type: 
  Country: None (occurrence: None)
  Receive Date: 20120516
  Receipt Date: 20120510
  Transmission Date: 20120825
  Serious: Yes (Hospitalization)
  Sender: FDA-Public Use
  Company Number: US-GLAXOSMITHKLINE-B0775459A

PATIENT
  Age: 51 Year
  Sex: Male
  Weight: 88.6 kg

DRUGS (8)
  1. LIPITOR [Concomitant]
  2. TOPROL-XL [Concomitant]
  3. TRICOR [Concomitant]
  4. WELLBUTRIN SR [Concomitant]
  5. AVANDIA [Suspect]
     Indication: DIABETES MELLITUS
     Dosage: 2MG TWICE PER DAY
     Route: 048
     Dates: start: 20060601, end: 20070501
  6. AVANDAMET [Suspect]
     Indication: DIABETES MELLITUS
     Route: 048
     Dates: start: 20051201, end: 20060601
  7. GLUCOPHAGE [Concomitant]
  8. RESTORIL [Concomitant]

REACTIONS (3)
  - MYOCARDIAL INFARCTION [None]
  - ABASIA [None]
  - CORONARY ARTERY DISEASE [None]
